FAERS Safety Report 6098004-9 (Version None)
Quarter: 2009Q1

REPORT INFORMATION
  Report Type: 
  Country: None (occurrence: None)
  Receive Date: 20090227
  Receipt Date: 20090218
  Transmission Date: 20090719
  Serious: Yes (Hospitalization)
  Sender: FDA-Public Use
  Company Number: US-EISAI MEDICAL RESEARCH-E2020-04161-SPO-US

PATIENT
  Sex: Female

DRUGS (9)
  1. ARICEPT [Suspect]
     Indication: DEMENTIA ALZHEIMER'S TYPE
     Route: 048
     Dates: start: 20040101
  2. CALCIUM [Concomitant]
     Route: 048
     Dates: start: 20020101
  3. ASCORBIC ACID [Concomitant]
     Route: 048
  4. VITAMIN E [Concomitant]
     Route: 048
     Dates: start: 20020101
  5. LOVAZA [Concomitant]
     Route: 048
     Dates: start: 20020101
  6. VITAMIN B COMPLEX CAP [Concomitant]
     Dosage: 1 TABLET
     Route: 048
     Dates: start: 20020101
  7. MEMANTINE HCL [Concomitant]
     Route: 048
     Dates: start: 20060101
  8. SERTRALINE [Concomitant]
     Route: 048
     Dates: start: 20050101
  9. ATORVASTATIN [Concomitant]
     Route: 048
     Dates: start: 20050101

REACTIONS (2)
  - CARDIAC PACEMAKER INSERTION [None]
  - PRESYNCOPE [None]
